FAERS Safety Report 13645033 (Version 1)
Quarter: 2017Q2

REPORT INFORMATION
  Report Type: Spontaneous
  Country: US (occurrence: US)
  Receive Date: 20170612
  Receipt Date: 20170612
  Transmission Date: 20170830
  Serious: No
  Sender: FDA-Public Use
  Company Number: US-ROCHE-1356699

PATIENT
  Sex: Female

DRUGS (6)
  1. XELODA [Suspect]
     Active Substance: CAPECITABINE
     Indication: PRODUCT USED FOR UNKNOWN INDICATION
     Dosage: 3 IN AM, 2 IN PM 7 DAYS ON AND 7 DAYS OFF
     Route: 048
     Dates: start: 20140131
  2. XELODA [Suspect]
     Active Substance: CAPECITABINE
     Route: 048
     Dates: start: 20140131
  3. NIFEDIPINE. [Concomitant]
     Active Substance: NIFEDIPINE
  4. LIALDA [Concomitant]
     Active Substance: MESALAMINE
  5. EXEMESTANE. [Concomitant]
     Active Substance: EXEMESTANE
  6. ZYRTEC [Concomitant]
     Active Substance: CETIRIZINE HYDROCHLORIDE

REACTIONS (2)
  - Muscle spasms [Unknown]
  - Paraesthesia [Unknown]
